FAERS Safety Report 5190032-0 (Version None)
Quarter: 2006Q4

REPORT INFORMATION
  Report Type: 
  Country: None (occurrence: None)
  Receive Date: 20061215
  Receipt Date: 20061208
  Transmission Date: 20070319
  Serious: Yes (Other)
  Sender: FDA-Public Use
  Company Number: 2006SP008059

PATIENT
  Age: 58 Year
  Sex: Female

DRUGS (2)
  1. CELESTENE [Suspect]
     Indication: BRONCHITIS
     Dosage: SEE IMAGE
     Route: 048
  2. CELESTENE [Suspect]
     Indication: BRONCHITIS
     Dosage: SEE IMAGE
     Route: 048

REACTIONS (4)
  - ANXIETY [None]
  - GAMMA-GLUTAMYLTRANSFERASE INCREASED [None]
  - LIPASE INCREASED [None]
  - TRANSAMINASES INCREASED [None]
